FAERS Safety Report 7639573-4 (Version None)
Quarter: 2011Q3

REPORT INFORMATION
  Report Type: 
  Country: None (occurrence: None)
  Receive Date: 20110722
  Receipt Date: 20110706
  Transmission Date: 20111222
  Serious: Yes (Hospitalization, Other)
  Sender: FDA-Public Use
  Company Number: 2011MA006880

PATIENT
  Age: 38 Year
  Sex: Female

DRUGS (1)
  1. VENLAFAXINE HYDROCHLORIDE [Suspect]
     Indication: INTENTIONAL OVERDOSE

REACTIONS (7)
  - INTENTIONAL OVERDOSE [None]
  - MATERNAL EXPOSURE DURING PREGNANCY [None]
  - PSYCHIATRIC DECOMPENSATION [None]
  - ANGIOGRAM ABNORMAL [None]
  - PREMATURE DELIVERY [None]
  - INTRACRANIAL PRESSURE INCREASED [None]
  - SUICIDE ATTEMPT [None]
